FAERS Safety Report 18131423 (Version 4)
Quarter: 2020Q3

REPORT INFORMATION
  Report Type: Report from Study
  Country: US (occurrence: US)
  Receive Date: 20200810
  Receipt Date: 20200915
  Transmission Date: 20201103
  Serious: Yes (Hospitalization)
  Sender: FDA-Public Use
  Company Number: US-JNJFOC-20200806208

PATIENT
  Age: 22 Year
  Sex: Male
  Weight: 64.6 kg

DRUGS (3)
  1. INFLIXIMAB, RECOMBINANT [Suspect]
     Active Substance: INFLIXIMAB
     Indication: INFLAMMATORY BOWEL DISEASE
     Route: 042
     Dates: start: 20100609
  2. STELARA [Concomitant]
     Active Substance: USTEKINUMAB
     Route: 065
     Dates: start: 20171204, end: 20200701
  3. BUDESONIDE. [Concomitant]
     Active Substance: BUDESONIDE

REACTIONS (2)
  - Intestinal fistula [Recovered/Resolved]
  - Liver abscess [Recovered/Resolved]

NARRATIVE: CASE EVENT DATE: 20200629
